FAERS Safety Report 4647808-5 (Version None)
Quarter: 2005Q2

REPORT INFORMATION
  Report Type: 
  Country: None (occurrence: None)
  Receive Date: 20050427
  Receipt Date: 20050427
  Transmission Date: 20051028
  Serious: No
  Sender: FDA-Public Use
  Company Number: None

PATIENT
  Sex: Female
  Weight: 67 kg

DRUGS (3)
  1. MITOMYCIN-C BULK POWDER [Suspect]
     Dosage: 10MG/M2 IV BOLUS ON DAY 1 AND 29
     Route: 040
     Dates: start: 20050419, end: 20050423
  2. FLUOROURACIL [Suspect]
     Dosage: 1000MG/M2/DAY IV BY CONTINUOUS INFUSION ON DAYS 1-4 AND 29-32
     Route: 042
     Dates: start: 20050419, end: 20050423
  3. RADIOTHERAPY [Suspect]
     Dates: start: 20050422

REACTIONS (6)
  - DEHYDRATION [None]
  - DIARRHOEA [None]
  - DRUG TOXICITY [None]
  - FREQUENT BOWEL MOVEMENTS [None]
  - NAUSEA [None]
  - VOMITING [None]
